FAERS Safety Report 5446812-7 (Version None)
Quarter: 2007Q3

REPORT INFORMATION
  Report Type: 
  Country: None (occurrence: None)
  Receive Date: 20070907
  Receipt Date: 20070827
  Transmission Date: 20080115
  Serious: Yes (Disabling)
  Sender: FDA-Public Use
  Company Number: DEWYE226228AUG07

PATIENT
  Sex: Female

DRUGS (2)
  1. TREVILOR [Suspect]
     Route: 048
     Dates: end: 20070701
  2. TREVILOR [Suspect]
     Route: 048

REACTIONS (5)
  - DRUG WITHDRAWAL SYNDROME [None]
  - FATIGUE [None]
  - IMPAIRED WORK ABILITY [None]
  - PARAESTHESIA [None]
  - VERTIGO [None]
